FAERS Safety Report 7237483-8 (Version None)
Quarter: 2011Q1

REPORT INFORMATION
  Report Type: 
  Country: None (occurrence: None)
  Receive Date: 20110118
  Receipt Date: 20110111
  Transmission Date: 20110831
  Serious: Yes (Life-Threatening, Other)
  Sender: FDA-Public Use
  Company Number: 20119916

PATIENT
  Sex: Female

DRUGS (1)
  1. LIORESAL [Suspect]
     Indication: MUSCLE SPASTICITY
     Dosage: DAILY, INTRATHECAL
     Route: 037

REACTIONS (8)
  - DEVICE CONNECTION ISSUE [None]
  - MUSCLE TIGHTNESS [None]
  - MUSCLE SPASMS [None]
  - NECK PAIN [None]
  - DRUG SPECIFIC ANTIBODY PRESENT [None]
  - ASTHENIA [None]
  - CONDITION AGGRAVATED [None]
  - MUSCLE ATROPHY [None]
